FAERS Safety Report 10311536 (Version 1)
Quarter: 2014Q3

REPORT INFORMATION
  Report Type: Spontaneous
  Country: US (occurrence: US)
  Receive Date: 20140717
  Receipt Date: 20140717
  Transmission Date: 20150326
  Serious: Yes (Hospitalization)
  Sender: FDA-Public Use
  Company Number: US-GLAXOSMITHKLINE-A1080916A

PATIENT
  Age: 44 Year
  Sex: Female

DRUGS (5)
  1. PREDNISONE. [Concomitant]
     Active Substance: PREDNISONE
  2. ADVAIR HFA [Suspect]
     Active Substance: FLUTICASONE PROPIONATE\SALMETEROL XINAFOATE
     Indication: DYSPNOEA
     Dosage: 1PUFF TWICE PER DAY
     Route: 055
  3. PROVENTIL [Concomitant]
     Active Substance: ALBUTEROL
  4. DUONEB [Concomitant]
     Active Substance: ALBUTEROL SULFATE\IPRATROPIUM BROMIDE
  5. SPIRIVA [Concomitant]
     Active Substance: TIOTROPIUM BROMIDE MONOHYDRATE

REACTIONS (10)
  - Dyspnoea [Unknown]
  - Emphysema [Not Recovered/Not Resolved]
  - Drug administration error [Recovered/Resolved]
  - Pulmonary fibrosis [Not Recovered/Not Resolved]
  - Chronic obstructive pulmonary disease [Not Recovered/Not Resolved]
  - Aphonia [Unknown]
  - Chest discomfort [Unknown]
  - Pleurisy [Unknown]
  - Upper respiratory tract infection [Unknown]
  - Insomnia [Unknown]

NARRATIVE: CASE EVENT DATE: 200811
